FAERS Safety Report 9794308 (Version 5)
Quarter: 2014Q1

REPORT INFORMATION
  Report Type: Spontaneous
  Country: US (occurrence: US)
  Receive Date: 20140102
  Receipt Date: 20140131
  Transmission Date: 20141002
  Serious: Yes (Other)
  Sender: FDA-Public Use
  Company Number: US-PFIZER INC-2013374734

PATIENT
  Age: 43 Year
  Sex: Female
  Weight: 77.1 kg

DRUGS (5)
  1. PRISTIQ [Suspect]
     Indication: PANIC DISORDER
     Dosage: 50 MG, DAILY
     Dates: start: 1990
  2. EFFEXOR [Suspect]
     Indication: PANIC DISORDER
     Dosage: 75 MG, UNK
  3. EFFEXOR [Suspect]
     Indication: HOT FLUSH
  4. EFFEXOR XR [Suspect]
     Dosage: UNK
  5. LOSARTAN POTASSIUM W/HYDROCHLOROTHIAZIDE [Concomitant]
     Indication: HYPERTENSION
     Dosage: (LOSARTAN POTASSIUM 100MG/ HYDROCHLOROTHIAZIDE12.5 MG), DAILY

REACTIONS (5)
  - Breast cancer female [Recovering/Resolving]
  - Off label use [Not Recovered/Not Resolved]
  - Drug ineffective [Unknown]
  - Drug ineffective for unapproved indication [Unknown]
  - Off label use [Unknown]
